FAERS Safety Report 4944248-6 (Version None)
Quarter: 2006Q1

REPORT INFORMATION
  Report Type: 
  Country: None (occurrence: None)
  Receive Date: 20060308
  Receipt Date: 20050703
  Transmission Date: 20060701
  Serious: Yes (Other)
  Sender: FDA-Public Use
  Company Number: HQWYE315701DEC03

PATIENT
  Age: 33 Year
  Sex: Male

DRUGS (1)
  1. BENEFIX [Suspect]
     Indication: FACTOR IX DEFICIENCY
     Dosage: 50 - 68 U/KG ON DEMAND INTRAVENOUS
     Route: 042
     Dates: start: 20020826, end: 20040115

REACTIONS (3)
  - COAGULATION FACTOR IX LEVEL DECREASED [None]
  - DRUG INEFFECTIVE [None]
  - INFUSION RELATED REACTION [None]
